FAERS Safety Report 18871633 (Version 1)
Quarter: 2021Q1

REPORT INFORMATION
  Report Type: Spontaneous
  Country: US (occurrence: US)
  Receive Date: 20210210
  Receipt Date: 20210210
  Transmission Date: 20210420
  Serious: No
  Sender: FDA-Public Use
  Company Number: US-SA-2021SA041434

PATIENT
  Age: 28 Year
  Sex: Female

DRUGS (1)
  1. DUPILUMAB [Suspect]
     Active Substance: DUPILUMAB
     Indication: PAIN
     Dosage: 300 MG, QOW
     Route: 058
     Dates: start: 20200812

REACTIONS (4)
  - Product use in unapproved indication [Unknown]
  - Arthralgia [Unknown]
  - Dermatitis atopic [Unknown]
  - Product dose omission in error [Unknown]
